FAERS Safety Report 22072660 (Version 1)
Quarter: 2023Q1

REPORT INFORMATION
  Report Type: Report from Study
  Country: US (occurrence: US)
  Receive Date: 20230308
  Receipt Date: 20230308
  Transmission Date: 20230418
  Serious: No
  Sender: FDA-Public Use
  Company Number: US-002147023-NVSC2023US049663

PATIENT
  Sex: Female

DRUGS (2)
  1. KESIMPTA [Suspect]
     Active Substance: OFATUMUMAB
     Indication: Multiple sclerosis
     Dosage: 20 MG, QMO, (FIRST DOSE)
     Route: 058
  2. KESIMPTA [Suspect]
     Active Substance: OFATUMUMAB
     Dosage: 20 MG, QMO, (SECOND DOSE)
     Route: 058

REACTIONS (4)
  - Pain [Recovering/Resolving]
  - Fatigue [Recovered/Resolved]
  - Pyrexia [Recovering/Resolving]
  - Chills [Recovering/Resolving]
